FAERS Safety Report 8952851 (Version 1)
Quarter: 2012Q4

REPORT INFORMATION
  Report Type: 
  Country: DE (occurrence: DE)
  Receive Date: 20121203
  Receipt Date: 20121203
  Transmission Date: 20130627
  Serious: Yes (Hospitalization, Other)
  Sender: FDA-Public Use
  Company Number: PHHY2012DE108220

PATIENT
  Age: 28 Year
  Sex: Male

DRUGS (8)
  1. LEPONEX [Suspect]
     Dosage: UNK UKN, UNK
     Route: 048
     Dates: start: 20111229
  2. LEPONEX [Suspect]
     Dosage: 100 mg
     Route: 048
     Dates: start: 20120105, end: 20120112
  3. LEPONEX [Suspect]
     Dosage: 50 mg
     Route: 048
     Dates: start: 20120113, end: 20120113
  4. LEPONEX [Suspect]
     Dosage: 50 mg
     Route: 048
     Dates: start: 20120116
  5. LEPONEX [Suspect]
     Dosage: 100 mg
     Route: 048
     Dates: start: 20120117
  6. ORFIRIL [Concomitant]
     Dosage: 1200 mg, UNK
     Route: 048
     Dates: start: 20111207
  7. SEROQUEL [Concomitant]
     Dates: start: 20120130
  8. VALPROATE [Concomitant]
     Dates: start: 20111201

REACTIONS (12)
  - Pseudomembranous colitis [Unknown]
  - Upper respiratory tract infection [Recovering/Resolving]
  - Pleural effusion [Recovering/Resolving]
  - Hallucination [Recovering/Resolving]
  - Pneumonia [Unknown]
  - Lung infection [Recovering/Resolving]
  - Pyrexia [Recovered/Resolved]
  - Chest pain [Recovering/Resolving]
  - Breath sounds abnormal [Recovering/Resolving]
  - Diarrhoea [Recovering/Resolving]
  - Pancreatitis [Unknown]
  - Antipsychotic drug level decreased [Recovering/Resolving]
